FAERS Safety Report 15938196 (Version 1)
Quarter: 2019Q1

REPORT INFORMATION
  Report Type: Spontaneous
  Country: US (occurrence: US)
  Receive Date: 20190208
  Receipt Date: 20190208
  Transmission Date: 20190417
  Serious: No
  Sender: FDA-Public Use
  Company Number: US-ROCHE-2194423

PATIENT
  Sex: Female

DRUGS (2)
  1. BENADRYL [Suspect]
     Active Substance: DIPHENHYDRAMINE HYDROCHLORIDE
     Indication: PRODUCT USED FOR UNKNOWN INDICATION
     Dosage: 25 MG X2
     Route: 065
  2. XOLAIR [Suspect]
     Active Substance: OMALIZUMAB
     Indication: PRODUCT USED FOR UNKNOWN INDICATION
     Dosage: 2 INJECTIONS EVERY 2 WEEKS; ONGOING: UNKNOWN
     Route: 058

REACTIONS (7)
  - Dyspnoea [Unknown]
  - Hypoaesthesia [Unknown]
  - Malaise [Unknown]
  - Swelling face [Unknown]
  - Drug hypersensitivity [Unknown]
  - Asthma [Unknown]
  - Drug ineffective [Unknown]
